FAERS Safety Report 6021880-2 (Version None)
Quarter: 2008Q4

REPORT INFORMATION
  Report Type: 
  Country: None (occurrence: None)
  Receive Date: 20081222
  Receipt Date: 20081019
  Transmission Date: 20090506
  Serious: No
  Sender: FDA-Public Use
  Company Number: ALL 1-2008-03051

PATIENT
  Age: 6 Year
  Sex: Male
  Weight: 18.1 kg

DRUGS (2)
  1. VYVANSE [Suspect]
     Indication: ATTENTION DEFICIT/HYPERACTIVITY DISORDER
     Dosage: 30 MG, 1X/DAY:QD, ORAL
     Route: 048
     Dates: start: 20081018, end: 20081019
  2. NASONEX [Concomitant]

REACTIONS (3)
  - INSOMNIA [None]
  - LOGORRHOEA [None]
  - MYDRIASIS [None]
